FAERS Safety Report 12221644 (Version 1)
Quarter: 2016Q1

REPORT INFORMATION
  Report Type: Spontaneous
  Country: US (occurrence: US)
  Receive Date: 20160330
  Receipt Date: 20160330
  Transmission Date: 20160526
  Serious: No
  Sender: FDA-Public Use
  Company Number: US-009507513-1603USA012830

PATIENT
  Age: 74 Year
  Sex: Female

DRUGS (3)
  1. CALCIUM (UNSPECIFIED) [Concomitant]
     Active Substance: CALCIUM
     Dosage: UNK
  2. VITAMIN B (UNSPECIFIED) [Concomitant]
     Dosage: UNK
  3. BELSOMRA [Suspect]
     Active Substance: SUVOREXANT
     Indication: INSOMNIA
     Dosage: 10 MG, 1 DAILY
     Route: 048

REACTIONS (2)
  - Drug ineffective [Unknown]
  - Muscular weakness [Unknown]
